FAERS Safety Report 6197230-8 (Version None)
Quarter: 2009Q2

REPORT INFORMATION
  Report Type: 
  Country: None (occurrence: None)
  Receive Date: 20090521
  Receipt Date: 20070911
  Transmission Date: 20091009
  Serious: Yes (Hospitalization, Other)
  Sender: FDA-Public Use
  Company Number: US-ASTRAZENECA-2006UW23504

PATIENT
  Age: 17273 Day
  Sex: Male
  Weight: 71.7 kg

DRUGS (57)
  1. SEROQUEL [Suspect]
     Indication: BIPOLAR DISORDER
     Dosage: 50-100 MG
     Route: 048
     Dates: start: 19991110, end: 20070101
  2. SEROQUEL [Suspect]
     Indication: SCHIZOAFFECTIVE DISORDER
     Dosage: 50-100 MG
     Route: 048
     Dates: start: 19991110, end: 20070101
  3. SEROQUEL [Suspect]
     Indication: DEPRESSION
     Dosage: 50-100 MG
     Route: 048
     Dates: start: 19991110, end: 20070101
  4. SEROQUEL [Suspect]
     Indication: INSOMNIA
     Dosage: 50-100 MG
     Route: 048
     Dates: start: 19991110, end: 20070101
  5. SEROQUEL [Suspect]
     Indication: AGITATION
     Dosage: 50-100 MG
     Route: 048
     Dates: start: 19991110, end: 20070101
  6. SEROQUEL [Suspect]
     Indication: ANXIETY
     Dosage: 50-100 MG
     Route: 048
     Dates: start: 19991110, end: 20070101
  7. SEROQUEL [Suspect]
     Dosage: 100 MG - 400 MG
     Route: 048
     Dates: start: 20000101
  8. SEROQUEL [Suspect]
     Dosage: 100 MG - 400 MG
     Route: 048
     Dates: start: 20000101
  9. SEROQUEL [Suspect]
     Dosage: 100 MG - 400 MG
     Route: 048
     Dates: start: 20000101
  10. SEROQUEL [Suspect]
     Dosage: 100 MG - 400 MG
     Route: 048
     Dates: start: 20000101
  11. SEROQUEL [Suspect]
     Dosage: 100 MG - 400 MG
     Route: 048
     Dates: start: 20000101
  12. SEROQUEL [Suspect]
     Dosage: 100 MG - 400 MG
     Route: 048
     Dates: start: 20000101
  13. HALIPERIDOL [Concomitant]
     Route: 065
     Dates: start: 20060101
  14. WELLBUTRIN XL [Concomitant]
     Route: 048
     Dates: start: 20060101
  15. AMANTADINE HCL [Concomitant]
     Route: 065
  16. MELLARIL [Concomitant]
     Indication: AGITATION
     Route: 048
     Dates: end: 19991202
  17. MELLARIL [Concomitant]
     Route: 030
     Dates: end: 19991202
  18. BUSPAR [Concomitant]
     Dosage: 40-60 MG
     Route: 065
  19. ACCUPRIL [Concomitant]
     Dosage: 10-20 MG
     Route: 048
  20. PARLODEL [Concomitant]
     Dosage: 10-15MG
     Route: 065
  21. LOPRESSOR [Concomitant]
     Dosage: 25-50 MG
     Route: 048
  22. KLONOPIN [Concomitant]
     Indication: ANXIETY
     Dosage: 0.75-4 MG
     Route: 048
     Dates: end: 20041109
  23. KLONOPIN [Concomitant]
     Indication: AGITATION
     Dosage: 0.75-4 MG
     Route: 048
     Dates: end: 20041109
  24. KLONOPIN [Concomitant]
     Indication: CONVULSION
     Dosage: 0.75-4 MG
     Route: 048
     Dates: end: 20041109
  25. CLONIDINE [Concomitant]
     Dosage: 0.3 MCG-8 MG
     Route: 065
  26. LITHIUM CARBONATE [Concomitant]
     Route: 048
  27. TRILEPTAL [Concomitant]
     Dosage: 600-1800 MG
     Route: 048
  28. MOBIC [Concomitant]
     Route: 065
  29. SERENTIL [Concomitant]
     Indication: DELUSION
     Dosage: 30-75 MG
     Route: 048
     Dates: end: 20010118
  30. SERENTIL [Concomitant]
     Indication: HALLUCINATION
     Dosage: 30-75 MG
     Route: 048
     Dates: end: 20010118
  31. VISTARIL [Concomitant]
     Indication: ANXIETY
     Route: 048
  32. OXYCODONE HCL [Concomitant]
     Indication: PAIN
     Route: 048
  33. METHYLPREDNISOLONE [Concomitant]
     Route: 065
  34. METHYLPREDNISOLONE [Concomitant]
     Route: 065
  35. TRICOR [Concomitant]
     Dosage: 48-145 MG
     Route: 048
  36. CELEXA [Concomitant]
     Indication: DEPRESSION
     Dosage: 20-40 MG
     Route: 048
     Dates: end: 20000225
  37. PAMELOR [Concomitant]
     Dosage: 50-125 MG
     Route: 048
  38. LEXAPRO [Concomitant]
     Indication: DEPRESSION
     Dosage: 10-30 MG
     Route: 048
     Dates: end: 20050228
  39. PRILOSEC [Concomitant]
     Route: 048
  40. COMBIVENT [Concomitant]
     Indication: DYSPNOEA
  41. FLOVENT INHALEAR [Concomitant]
  42. NEURONTIN [Concomitant]
     Indication: CONVULSION
     Dosage: 600-3200 MG
     Route: 048
  43. IMIPRAMINE [Concomitant]
     Indication: ANXIETY
     Dosage: 30-300 MG
     Route: 048
  44. DILANTIN [Concomitant]
     Dosage: 300-400 MG
     Route: 048
  45. CARDIZEM [Concomitant]
     Route: 065
  46. CARDIZEM [Concomitant]
     Dosage: 120-820 MG
     Route: 048
  47. TOPAMAX [Concomitant]
     Indication: MIGRAINE
     Dosage: 100-300 MG
     Route: 048
  48. VALIUM [Concomitant]
     Route: 048
  49. ALBUTEROL [Concomitant]
  50. AMBIEN CR [Concomitant]
     Indication: INSOMNIA
  51. REMERON [Concomitant]
     Indication: DEPRESSION
     Dosage: 30-60 MG
     Route: 048
  52. REMERON [Concomitant]
     Indication: SLEEP DISORDER
     Dosage: 30-60 MG
     Route: 048
  53. FLEXERIL [Concomitant]
     Indication: PAIN
     Route: 048
  54. FLEXERIL [Concomitant]
     Indication: MUSCLE SPASMS
     Route: 048
  55. GLUCOPHAGE [Concomitant]
     Dosage: 500-2000 MG
     Route: 048
  56. RESTORIL [Concomitant]
     Route: 048
  57. DEPAKOTE [Concomitant]
     Dosage: 250-2000 MG
     Route: 048
     Dates: end: 20070902

REACTIONS (31)
  - ABDOMINAL PAIN UPPER [None]
  - ARTHRALGIA [None]
  - BIPOLAR DISORDER [None]
  - BRADYCARDIA [None]
  - BRONCHITIS [None]
  - CHRONIC OBSTRUCTIVE PULMONARY DISEASE [None]
  - CONVULSION [None]
  - DELIRIUM [None]
  - DEPRESSION [None]
  - DIABETES MELLITUS [None]
  - DRUG ABUSE [None]
  - DRUG DEPENDENCE [None]
  - FATIGUE [None]
  - GASTROOESOPHAGEAL REFLUX DISEASE [None]
  - GENERALISED ANXIETY DISORDER [None]
  - HYPOMANIA [None]
  - HYPONATRAEMIA [None]
  - HYPOTENSION [None]
  - MAJOR DEPRESSION [None]
  - MANIA [None]
  - MYOCARDIAL INFARCTION [None]
  - NICOTINE DEPENDENCE [None]
  - OSTEOARTHRITIS [None]
  - PANIC DISORDER WITH AGORAPHOBIA [None]
  - POLYSUBSTANCE DEPENDENCE [None]
  - POST-TRAUMATIC STRESS DISORDER [None]
  - PSYCHOTIC DISORDER [None]
  - RIB FRACTURE [None]
  - SCHIZOAFFECTIVE DISORDER [None]
  - SKIN LACERATION [None]
  - SUICIDAL IDEATION [None]
